FAERS Safety Report 8001649-X (Version None)
Quarter: 2011Q4

REPORT INFORMATION
  Report Type: 
  Country: None (occurrence: None)
  Receive Date: 20111222
  Receipt Date: 20111209
  Transmission Date: 20120403
  Serious: Yes (Hospitalization)
  Sender: FDA-Public Use
  Company Number: US-ROCHE-1020760

PATIENT
  Sex: Female
  Weight: 101.7 kg

DRUGS (10)
  1. OMALIZUMAB [Suspect]
     Indication: PRODUCT USED FOR UNKNOWN INDICATION
     Dosage: MOST RECENT DOSE 26/OCT/2011
     Dates: start: 20090101
  2. VITAMIN D [Concomitant]
     Route: 048
  3. ADVAIR DISKUS 100/50 [Concomitant]
     Indication: ASTHMA
  4. SINGULAIR [Concomitant]
     Indication: HYPERSENSITIVITY
  5. FLOVENT [Concomitant]
     Indication: ASTHMA
  6. ALBUTEROL [Concomitant]
     Indication: ASTHMA
  7. SINGULAIR [Concomitant]
     Indication: ASTHMA
     Route: 048
  8. CALCIUM [Concomitant]
     Route: 048
  9. VITAMIN B-12 [Concomitant]
     Route: 048
  10. IRON [Concomitant]
     Route: 048

REACTIONS (4)
  - ASTHMA [None]
  - PREGNANCY [None]
  - MATERNAL EXPOSURE DURING PREGNANCY [None]
  - ANAEMIA [None]
